FAERS Safety Report 6314931-9 (Version None)
Quarter: 2009Q3

REPORT INFORMATION
  Report Type: 
  Country: None (occurrence: None)
  Receive Date: 20090819
  Receipt Date: 20090812
  Transmission Date: 20100115
  Serious: Yes (Other)
  Sender: FDA-Public Use
  Company Number: A0801901A

PATIENT
  Age: 63 Year
  Sex: Female

DRUGS (7)
  1. ADVAIR HFA [Suspect]
     Indication: CHRONIC OBSTRUCTIVE PULMONARY DISEASE
     Dosage: 1PUFF TWICE PER DAY
     Route: 055
     Dates: start: 20020101, end: 20090809
  2. SIMVASTATIN [Concomitant]
  3. DEMEROL [Concomitant]
  4. RANITIDINE [Concomitant]
  5. DIOVAN [Concomitant]
  6. ALPRAZOLAM [Concomitant]
  7. ALBUTEROL [Concomitant]

REACTIONS (9)
  - APHASIA [None]
  - COUGH [None]
  - DYSPHONIA [None]
  - DYSPNOEA [None]
  - FATIGUE [None]
  - INHALATION THERAPY [None]
  - IRRITABILITY [None]
  - PRODUCT QUALITY ISSUE [None]
  - WHEEZING [None]
